FAERS Safety Report 5907342-9 (Version None)
Quarter: 2008Q4

REPORT INFORMATION
  Report Type: 
  Country: None (occurrence: None)
  Receive Date: 20081003
  Receipt Date: 20080923
  Transmission Date: 20090506
  Serious: Yes (Congenital Anomaly)
  Sender: FDA-Public Use
  Company Number: ES-WATSON-2008-05824

PATIENT
  Sex: Female

DRUGS (1)
  1. AFEDITAB (WATSON LABORATORIES) [Suspect]
     Indication: PREMATURE LABOUR
     Dosage: UNK
     Route: 065
     Dates: start: 20060101, end: 20060101

REACTIONS (1)
  - INTRA-UTERINE DEATH [None]
